FAERS Safety Report 11844294 (Version 3)
Quarter: 2016Q1

REPORT INFORMATION
  Report Type: Spontaneous
  Country: JP (occurrence: JP)
  Receive Date: 20151217
  Receipt Date: 20160226
  Transmission Date: 20160526
  Serious: Yes (Hospitalization, Other)
  Sender: FDA-Public Use
  Company Number: JP-WATSON-2015-26465

PATIENT
  Age: 67 Year
  Sex: Male

DRUGS (10)
  1. SILODOSIN (UNKNOWN) [Suspect]
     Active Substance: SILODOSIN
     Indication: BLADDER OUTLET OBSTRUCTION
  2. MICARDIS [Concomitant]
     Active Substance: TELMISARTAN
     Indication: HYPERTENSION
     Dosage: 1 TABLET EACH MORNING
     Route: 048
     Dates: start: 20120720
  3. GLUFAST [Concomitant]
     Active Substance: MITIGLINIDE
     Indication: TYPE 2 DIABETES MELLITUS
     Dosage: UNK
     Route: 048
     Dates: start: 20150417, end: 20150807
  4. TRESIBA [Concomitant]
     Active Substance: INSULIN DEGLUDEC
     Indication: DIABETES MELLITUS
     Dosage: 51 IU, UNKNOWN
     Route: 058
     Dates: start: 20140312
  5. SILODOSIN (UNKNOWN) [Suspect]
     Active Substance: SILODOSIN
     Indication: BENIGN PROSTATIC HYPERPLASIA
  6. BABY ASPIRIN [Concomitant]
     Active Substance: ASPIRIN
     Indication: THROMBOSIS PROPHYLAXIS
     Dosage: 100 MG, EACH MORNING
     Route: 048
     Dates: start: 20150612
  7. LIVALO [Concomitant]
     Active Substance: PITAVASTATIN CALCIUM
     Indication: HYPERLIPIDAEMIA
     Dosage: 1 TABLET EACH MORNING
     Route: 048
     Dates: start: 20130226
  8. SILODOSIN (UNKNOWN) [Suspect]
     Active Substance: SILODOSIN
     Indication: DYSURIA
     Dosage: 1 TABLET EACH MORNING AND EVENING
     Route: 048
     Dates: start: 2012
  9. GLUFAST [Concomitant]
     Active Substance: MITIGLINIDE
     Dosage: 30 MG, UNKNOWN
     Route: 048
     Dates: start: 20150807
  10. EQUA [Concomitant]
     Active Substance: VILDAGLIPTIN
     Indication: DIABETES MELLITUS
     Dosage: 50 MG, EACH MORNING AND EVENING
     Route: 048
     Dates: start: 20130716

REACTIONS (3)
  - Blepharospasm [Not Recovered/Not Resolved]
  - Prostate cancer [Recovered/Resolved]
  - Haematuria [Not Recovered/Not Resolved]

NARRATIVE: CASE EVENT DATE: 20150930
